FAERS Safety Report 10220978 (Version 3)
Quarter: 2014Q3

REPORT INFORMATION
  Report Type: Spontaneous
  Country: US (occurrence: None)
  Receive Date: 20140604
  Receipt Date: 20140806
  Transmission Date: 20150326
  Serious: Yes (Life-Threatening, Hospitalization)
  Sender: FDA-Public Use
  Company Number: UTC-047362

PATIENT
  Age: 15 Year
  Sex: Male
  Weight: 30 kg

DRUGS (4)
  1. TRACLEER [Concomitant]
     Active Substance: BOSENTAN\BOSENTAN MONOHYDRATE
  2. WARFARIN (WARFARIN) [Concomitant]
     Active Substance: WARFARIN
  3. ADCIRCA [Concomitant]
     Active Substance: TADALAFIL
  4. REMODULIN [Suspect]
     Active Substance: TREPROSTINIL
     Indication: PULMONARY ARTERIAL HYPERTENSION
     Route: 041
     Dates: start: 20110909

REACTIONS (3)
  - Cellulitis [None]
  - Injection site pain [None]
  - Pulmonary arterial hypertension [None]

NARRATIVE: CASE EVENT DATE: 20140331
